FAERS Safety Report 5248121-8 (Version None)
Quarter: 2007Q1

REPORT INFORMATION
  Report Type: 
  Country: None (occurrence: None)
  Receive Date: 20070227
  Receipt Date: 20051228
  Transmission Date: 20070707
  Serious: Yes (Other)
  Sender: FDA-Public Use
  Company Number: US-BRISTOL-MYERS SQUIBB COMPANY-13231006

PATIENT
  Age: 76 Year
  Sex: Female
  Weight: 130 kg

DRUGS (10)
  1. GLUCOPHAGE [Suspect]
     Indication: DIABETES MELLITUS
  2. FOSAMAX [Concomitant]
  3. HYDROCHLOROTHIAZIDE [Concomitant]
  4. AVANDIA [Concomitant]
  5. CRESTOR [Concomitant]
  6. ADVAIR DISKUS 100/50 [Concomitant]
  7. POTASSIUM ACETATE [Concomitant]
  8. ASPIRIN [Concomitant]
  9. PROVENTIL [Concomitant]
  10. MAVIK [Concomitant]

REACTIONS (2)
  - BLOOD GLUCOSE INCREASED [None]
  - WRONG DRUG ADMINISTERED [None]
